FAERS Safety Report 20412114 (Version 4)
Quarter: 2022Q1

REPORT INFORMATION
  Report Type: Report from Study
  Country: TW (occurrence: TW)
  Receive Date: 20220201
  Receipt Date: 20220302
  Transmission Date: 20220424
  Serious: Yes (Life-Threatening, Hospitalization, Other)
  Sender: FDA-Public Use
  Company Number: TW-NOVARTISPH-NVSC2021TW278377

PATIENT
  Age: 62 Year
  Sex: Female
  Weight: 42 kg

DRUGS (28)
  1. MYFORTIC [Suspect]
     Active Substance: MYCOPHENOLATE SODIUM
     Indication: Lupus nephritis
     Dosage: 720 MG, QD
     Route: 048
     Dates: start: 20210316, end: 20211021
  2. FUROSEMIDE [Concomitant]
     Active Substance: FUROSEMIDE
     Indication: Systemic lupus erythematosus
     Dosage: 80 MG, UNKNOWN
     Route: 065
     Dates: start: 20210928
  3. FUROSEMIDE [Concomitant]
     Active Substance: FUROSEMIDE
     Indication: Endotracheal intubation
     Dosage: UNK
     Route: 042
     Dates: start: 20211022, end: 20211026
  4. PREDNISOLONE [Concomitant]
     Active Substance: PREDNISOLONE
     Indication: Systemic lupus erythematosus
     Dosage: 10 MG
     Route: 065
     Dates: start: 20191120
  5. HYDROTALCITE [Concomitant]
     Active Substance: HYDROTALCITE
     Indication: Prophylaxis
     Dosage: 1500 MG, UNKNOWN
     Route: 065
     Dates: start: 20210330
  6. ACETAMINOPHEN [Concomitant]
     Active Substance: ACETAMINOPHEN
     Indication: Pyrexia
     Dosage: UNK
     Route: 048
     Dates: start: 20211019, end: 20211020
  7. ACETYLCYSTEINE [Concomitant]
     Active Substance: ACETYLCYSTEINE
     Indication: Pleural effusion
     Dosage: UNK
     Route: 048
     Dates: start: 20211020, end: 20211021
  8. ALBUMIN HUMAN [Concomitant]
     Active Substance: ALBUMIN HUMAN
     Indication: Diarrhoea
     Dosage: UNK
     Route: 042
     Dates: start: 20211022, end: 20211024
  9. CEFTRIAXONE SODIUM [Concomitant]
     Active Substance: CEFTRIAXONE SODIUM
     Indication: Pyrexia
     Dosage: UNK
     Route: 042
     Dates: start: 20211018, end: 20211021
  10. CEFTRIAXONE SODIUM [Concomitant]
     Active Substance: CEFTRIAXONE SODIUM
     Dosage: UNK
     Route: 042
     Dates: start: 20211018, end: 20211019
  11. COTRIMOXAZOLE [Concomitant]
     Active Substance: SULFAMETHOXAZOLE\TRIMETHOPRIM
     Indication: Pleural effusion
     Dosage: UNK
     Route: 048
     Dates: start: 20211021, end: 20211027
  12. AMBROXOL HYDROCHLORIDE [Concomitant]
     Active Substance: AMBROXOL HYDROCHLORIDE
     Indication: Pleural effusion
     Dosage: UNK
     Route: 048
     Dates: start: 20211021, end: 20211022
  13. AMPICILLIN [Concomitant]
     Active Substance: AMPICILLIN
     Indication: Pyrexia
     Dosage: UNK
     Route: 042
     Dates: start: 20210911, end: 20210912
  14. IPRATROPIUM BROMIDE [Concomitant]
     Active Substance: IPRATROPIUM BROMIDE
     Indication: Pleural effusion
     Dosage: UNK
     Route: 055
     Dates: start: 20211021, end: 20211106
  15. FLUOCINOLONE [Concomitant]
     Active Substance: FLUOCINOLONE
     Indication: Pleural effusion
     Dosage: UNK
     Route: 042
     Dates: start: 20211021, end: 20211102
  16. DEXTROSE [Concomitant]
     Active Substance: DEXTROSE
     Indication: Asthenia
     Dosage: UNK
     Route: 042
     Dates: start: 20211021, end: 20211022
  17. ESOMEPRAZOLE [Concomitant]
     Active Substance: ESOMEPRAZOLE
     Indication: Haematochezia
     Dosage: UNK
     Route: 042
     Dates: start: 20211022, end: 20211026
  18. LEVETIRACETAM [Concomitant]
     Active Substance: LEVETIRACETAM
     Indication: Cerebral atrophy
     Dosage: UNK
     Route: 042
     Dates: start: 20211022, end: 20211023
  19. FENTANYL CITRATE [Concomitant]
     Active Substance: FENTANYL CITRATE
     Indication: Endotracheal intubation
     Dosage: UNK
     Route: 042
     Dates: start: 20211023, end: 20211102
  20. LORAZEPAM [Concomitant]
     Active Substance: LORAZEPAM
     Indication: Cerebral atrophy
     Dosage: UNK
     Route: 042
     Dates: start: 20211022, end: 20211022
  21. FLUCONAZOLE [Concomitant]
     Active Substance: FLUCONAZOLE
     Indication: Pericardial effusion
     Dosage: UNK
     Route: 042
     Dates: start: 20211020, end: 20211021
  22. XYLMOL [Concomitant]
     Indication: Body tinea
     Dosage: UNK
     Route: 061
     Dates: start: 20211020, end: 20211020
  23. TRIAMCINOLONE ACETONIDE [Concomitant]
     Active Substance: TRIAMCINOLONE ACETONIDE
     Indication: Diarrhoea
     Dosage: UNK
     Route: 061
     Dates: start: 20211020, end: 20211020
  24. NOREPINEPHRINE BITARTRATE [Concomitant]
     Active Substance: NOREPINEPHRINE BITARTRATE
     Indication: Respiratory acidosis
     Dosage: UNK
     Route: 042
     Dates: start: 20211022, end: 20211022
  25. VITAMINS [Concomitant]
     Active Substance: VITAMINS
     Indication: Endotracheal intubation
     Dosage: UNK
     Route: 042
     Dates: start: 20211022, end: 20211022
  26. SUCCINYLCHOLINE CHLORIDE [Concomitant]
     Active Substance: SUCCINYLCHOLINE CHLORIDE
     Indication: Cerebral atrophy
     Dosage: UNK
     Route: 042
     Dates: start: 20211022, end: 20211022
  27. TRANEXAMIC ACID [Concomitant]
     Active Substance: TRANEXAMIC ACID
     Indication: Haematochezia
     Dosage: UNK
     Route: 042
     Dates: start: 20211018, end: 20211021
  28. MOMETASONE FUROATE [Concomitant]
     Active Substance: MOMETASONE FUROATE
     Indication: Eczema
     Dosage: UNK
     Route: 061
     Dates: start: 20210426, end: 20210503

REACTIONS (19)
  - Gastrointestinal haemorrhage [Recovered/Resolved]
  - Haematochezia [Recovered/Resolved]
  - Productive cough [Recovering/Resolving]
  - Tachypnoea [Recovered/Resolved]
  - Anaemia [Recovering/Resolving]
  - Pneumonia [Recovered/Resolved]
  - Dyspnoea [Recovering/Resolving]
  - Cough [Recovering/Resolving]
  - Pyrexia [Recovering/Resolving]
  - Asthenia [Recovering/Resolving]
  - Upper respiratory tract infection [Recovered/Resolved]
  - Pyrexia [Recovered/Resolved]
  - Lung consolidation [Recovering/Resolving]
  - Lung opacity [Recovering/Resolving]
  - Pleural effusion [Recovering/Resolving]
  - Pericardial effusion [Recovering/Resolving]
  - Cerebral atrophy [Not Recovered/Not Resolved]
  - Pulmonary oedema [Recovered/Resolved]
  - Respiratory acidosis [Recovered/Resolved]

NARRATIVE: CASE EVENT DATE: 20210903
